FAERS Safety Report 4575352-2 (Version None)
Quarter: 2005Q1

REPORT INFORMATION
  Report Type: 
  Country: None (occurrence: None)
  Receive Date: 20050209
  Receipt Date: 20050118
  Transmission Date: 20050727
  Serious: Yes (Death)
  Sender: FDA-Public Use
  Company Number: PHNU2005DE00591

PATIENT
  Sex: Male

DRUGS (1)
  1. TRILEPTAL [Suspect]
     Indication: CONVULSION
     Dosage: 1500 MG/D
     Route: 048
     Dates: start: 20040601

REACTIONS (4)
  - DYSHIDROSIS [None]
  - INFECTION [None]
  - PYREXIA [None]
  - URINARY TRACT INFECTION [None]
